FAERS Safety Report 6222690-3 (Version None)
Quarter: 2009Q2

REPORT INFORMATION
  Report Type: 
  Country: None (occurrence: None)
  Receive Date: 20090609
  Receipt Date: 20090528
  Transmission Date: 20091009
  Serious: Yes (Other)
  Sender: FDA-Public Use
  Company Number: 230177K09GBR

PATIENT
  Age: 50 Year
  Sex: Female

DRUGS (1)
  1. REBIF [Suspect]
     Dates: start: 20090115

REACTIONS (3)
  - NEOPLASM [None]
  - NEOPLASM SWELLING [None]
  - TUMOUR PAIN [None]
